FAERS Safety Report 6702306-X (Version None)
Quarter: 2010Q2

REPORT INFORMATION
  Report Type: 
  Country: None (occurrence: None)
  Receive Date: 20100429
  Receipt Date: 20100427
  Transmission Date: 20101027
  Serious: Yes (Other)
  Sender: FDA-Public Use
  Company Number: JP-BAYER-201011079BYL

PATIENT
  Age: 60 Year
  Sex: Male

DRUGS (3)
  1. PERDIPINE [Suspect]
     Indication: RENAL HYPERTENSION
     Route: 048
     Dates: start: 19870401, end: 19870701
  2. EMABERIN [Suspect]
     Indication: RENAL HYPERTENSION
     Route: 048
     Dates: start: 19870701, end: 19880101
  3. FLUITRAN [Suspect]
     Indication: RENAL HYPERTENSION
     Route: 048
     Dates: start: 19870501, end: 19870701

REACTIONS (1)
  - PAPULOERYTHRODERMA OF OFUJI [None]
